FAERS Safety Report 25282243 (Version 2)
Quarter: 2025Q3

REPORT INFORMATION
  Report Type: Spontaneous
  Country: US (occurrence: US)
  Receive Date: 20250508
  Receipt Date: 20250729
  Transmission Date: 20251021
  Serious: No
  Sender: ABBVIE
  Company Number: US-ABBVIE-6260765

PATIENT
  Sex: Female

DRUGS (2)
  1. QULIPTA [Suspect]
     Active Substance: ATOGEPANT
     Indication: Migraine prophylaxis
     Route: 048
     Dates: start: 2025
  2. QULIPTA [Suspect]
     Active Substance: ATOGEPANT
     Indication: Migraine prophylaxis
     Route: 048
     Dates: start: 2019

REACTIONS (3)
  - Abdominal distension [Unknown]
  - Weight decreased [Unknown]
  - Decreased appetite [Unknown]
